FAERS Safety Report 6258976-6 (Version None)
Quarter: 2009Q3

REPORT INFORMATION
  Report Type: 
  Country: None (occurrence: None)
  Receive Date: 20090707
  Receipt Date: 20090626
  Transmission Date: 20100115
  Serious: Yes (Other)
  Sender: FDA-Public Use
  Company Number: PHEH2009US06803

PATIENT
  Sex: Female

DRUGS (10)
  1. FEMARA [Suspect]
     Indication: BREAST CANCER
  2. AROMASIN [Suspect]
     Indication: BREAST CANCER
  3. ANASTROZOLE [Suspect]
     Indication: BREAST CANCER
  4. ZOMETA [Concomitant]
     Dosage: UNK
  5. VITAMIN D [Concomitant]
     Dosage: UNK
  6. ASCORBIC ACID [Concomitant]
     Dosage: UNK
  7. LOVAZA [Concomitant]
     Dosage: UNK
  8. MULTI-VIT [Concomitant]
     Dosage: UNK
  9. METHYLCELLULOSE [Concomitant]
     Dosage: UNK
  10. ALLEGRA [Concomitant]

REACTIONS (3)
  - FATIGUE [None]
  - PALPITATIONS [None]
  - VENTRICULAR EXTRASYSTOLES [None]
